FAERS Safety Report 9174143 (Version 1)
Quarter: 2013Q1

REPORT INFORMATION
  Report Type: Spontaneous
  Country: US (occurrence: None)
  Receive Date: 20130315
  Receipt Date: 20130315
  Transmission Date: 20140127
  Serious: Yes (Life-Threatening, Congenital Anomaly)
  Sender: FDA-Public Use
  Company Number: 2013-03611

PATIENT
  Sex: Female

DRUGS (7)
  1. LOSARTAN POTASSIUM (LOSARTAN POTASSIUM) [Suspect]
     Indication: HYPERTENSION
     Route: 064
  2. GABAPENTIN (GABAPENTIN) [Concomitant]
  3. HYDROCHLOROTHIAZIDE (HYDROCHLOROTHIAZIDE) [Concomitant]
  4. LABETALOL (LABETALOL) [Concomitant]
  5. MAGNESIUM SULFATE (MAGNESIUM SULFATE) [Concomitant]
  6. BETAMETHASONE (BETAMETHASONE) [Concomitant]
  7. OXYTOCIN (OXYTOCIN) [Concomitant]

REACTIONS (26)
  - Neonatal respiratory distress syndrome [None]
  - Patent ductus arteriosus [None]
  - Pulmonary hypertension [None]
  - Hypotonia neonatal [None]
  - Delayed fontanelle closure [None]
  - Joint contracture [None]
  - Neonatal hypotension [None]
  - Oliguria [None]
  - Metabolic acidosis [None]
  - Hyponatraemia [None]
  - Hypocalcaemia [None]
  - Hyperkalaemia [None]
  - Renal tubular acidosis [None]
  - Developmental delay [None]
  - Adrenal insufficiency neonatal [None]
  - Maternal drugs affecting foetus [None]
  - Oligohydramnios [None]
  - Caesarean section [None]
  - Bradycardia neonatal [None]
  - Cyanosis neonatal [None]
  - Apgar score low [None]
  - Joint range of motion decreased [None]
  - Neonatal respiratory failure [None]
  - Sepsis neonatal [None]
  - Haemorrhagic cerebral infarction [None]
  - Nephropathy [None]
